FAERS Safety Report 4624952-X (Version None)
Quarter: 2005Q2

REPORT INFORMATION
  Report Type: 
  Country: None (occurrence: None)
  Receive Date: 20050401
  Receipt Date: 20030721
  Transmission Date: 20051028
  Serious: Yes (Death)
  Sender: FDA-Public Use
  Company Number: US-ABBOTT-03P-163-0225929-00

PATIENT
  Age: 45 Year
  Sex: Female
  Weight: 78.088 kg

DRUGS (4)
  1. HYDROCODONE BITARTRATE [Suspect]
     Indication: DRUG USE FOR UNKNOWN INDICATION
     Dates: end: 20020101
  2. ETHANOL [Suspect]
     Indication: DRUG USE FOR UNKNOWN INDICATION
  3. DEXTROPROPOXYPHENE [Suspect]
     Indication: DRUG USE FOR UNKNOWN INDICATION
  4. ALPRAZOLAM [Suspect]
     Indication: DRUG USE FOR UNKNOWN INDICATION

REACTIONS (3)
  - ALCOHOL INTERACTION [None]
  - DRUG INTERACTION [None]
  - DRUG TOXICITY [None]
